FAERS Safety Report 22358169 (Version 2)
Quarter: 2023Q2

REPORT INFORMATION
  Report Type: Report from Study
  Country: US (occurrence: US)
  Receive Date: 20230524
  Receipt Date: 20230526
  Transmission Date: 20230722
  Serious: No
  Sender: FDA-Public Use
  Company Number: US-002147023-NVSC2023US115556

PATIENT
  Sex: Male

DRUGS (1)
  1. ENTRESTO [Suspect]
     Active Substance: SACUBITRIL\VALSARTAN
     Indication: Cardiac disorder
     Dosage: 1 DOSAGE FORM, BID (24/26 MG)
     Route: 048
     Dates: start: 20220301

REACTIONS (4)
  - Myalgia [Unknown]
  - Arthralgia [Unknown]
  - Back pain [Unknown]
  - Musculoskeletal pain [Unknown]
